FAERS Safety Report 7623874-X (Version None)
Quarter: 2011Q3

REPORT INFORMATION
  Report Type: 
  Country: None (occurrence: None)
  Receive Date: 20110720
  Receipt Date: 20110712
  Transmission Date: 20111222
  Serious: Yes (Other)
  Sender: FDA-Public Use
  Company Number: CA-JNJFOC-20110610112

PATIENT
  Sex: Female
  Weight: 93 kg

DRUGS (2)
  1. MORPHINE [Concomitant]
     Indication: PAIN
  2. REMICADE [Suspect]
     Indication: CROHN'S DISEASE
     Route: 042
     Dates: start: 20101001

REACTIONS (2)
  - PYREXIA [None]
  - RENAL COLIC [None]
